FAERS Safety Report 9565660 (Version 1)
Quarter: 2013Q3

REPORT INFORMATION
  Report Type: Spontaneous
  Country: US (occurrence: US)
  Receive Date: 20130930
  Receipt Date: 20130930
  Transmission Date: 20140515
  Serious: Yes (Death)
  Sender: FDA-Public Use
  Company Number: US-PFIZER INC-2013277936

PATIENT
  Age: 49 Year
  Sex: Male

DRUGS (9)
  1. INLYTA [Suspect]
     Indication: RENAL CELL CARCINOMA
     Dosage: 5 MG, 2X/DAY (TAKE 1 TABLET BY MOUTH TWICE A DAY)
     Route: 048
  2. ASPIRIN [Concomitant]
     Dosage: 81 MG, UNK
  3. DICLOFENAC [Concomitant]
     Dosage: 75 MG, UNK DR
  4. MORPHINE SULFATE [Concomitant]
     Dosage: 15 MG, UNK
  5. METFORMIN [Concomitant]
     Dosage: 500 MG, UNK
  6. CALCIUM WITH VITAMIN D [Concomitant]
     Dosage: 500 UNK, UNK
  7. LISINOPRIL [Concomitant]
     Dosage: 10 MG, UNK
  8. ZOFRAN [Concomitant]
     Dosage: 8 MG, UNK
  9. STOOL SOFTENER [Concomitant]
     Dosage: 100 MG, UNK

REACTIONS (1)
  - Death [Fatal]
